FAERS Safety Report 20554732 (Version 2)
Quarter: 2022Q2

REPORT INFORMATION
  Report Type: Report from Study
  Country: JP (occurrence: JP)
  Receive Date: 20220304
  Receipt Date: 20220419
  Transmission Date: 20220720
  Serious: Yes (Other)
  Sender: FDA-Public Use
  Company Number: JP-ONO-2022JP005555

PATIENT
  Age: 71 Year
  Sex: Female
  Weight: 54.1 kg

DRUGS (5)
  1. BRAFTOVI [Suspect]
     Active Substance: ENCORAFENIB
     Indication: Colon cancer
     Dosage: 300 MG, EVERYDAY
     Route: 048
     Dates: start: 20210201, end: 20210314
  2. BRAFTOVI [Suspect]
     Active Substance: ENCORAFENIB
     Dosage: 300 MG, EVERYDAY
     Route: 048
     Dates: start: 20210405
  3. CETUXIMAB [Suspect]
     Active Substance: CETUXIMAB
     Indication: Colon cancer
     Dosage: 400 MG/M2
     Route: 065
     Dates: start: 20210201, end: 20210201
  4. CETUXIMAB [Suspect]
     Active Substance: CETUXIMAB
     Dosage: 250 MG/M2, QW
     Route: 065
     Dates: start: 20210208, end: 20210308
  5. CETUXIMAB [Suspect]
     Active Substance: CETUXIMAB
     Dosage: 250 MG/M2
     Route: 065
     Dates: start: 20210405

REACTIONS (6)
  - Neutropenia [Recovered/Resolved]
  - Epistaxis [Recovered/Resolved]
  - Dermatitis acneiform [Not Recovered/Not Resolved]
  - Pyogenic granuloma [Recovered/Resolved]
  - Skin mass [Recovered/Resolved]
  - Benign neoplasm of skin [Recovered/Resolved]

NARRATIVE: CASE EVENT DATE: 20210301
